FAERS Safety Report 16715410 (Version 1)
Quarter: 2019Q4

REPORT INFORMATION
  Report Type: Spontaneous
  Country: US (occurrence: US)
  Receive Date: 20190816
  Receipt Date: 20190816
  Transmission Date: 20200122
  Serious: Yes (Hospitalization)
  Sender: FDA-Public Use
  Company Number: None

PATIENT
  Age: 63 Year
  Sex: Male

DRUGS (11)
  1. PRAMIPEXOLE. [Concomitant]
     Active Substance: PRAMIPEXOLE
  2. TAMSULOSIN [Concomitant]
     Active Substance: TAMSULOSIN
  3. DULOXETINE. [Concomitant]
     Active Substance: DULOXETINE
  4. BENZONATATE. [Concomitant]
     Active Substance: BENZONATATE
  5. METHYLPRED [Concomitant]
     Active Substance: METHYLPREDNISOLONE
  6. CIPRO [Concomitant]
     Active Substance: CIPROFLOXACIN HYDROCHLORIDE
  7. HYDROCO/APAP [Concomitant]
     Active Substance: ACETAMINOPHEN\HYDROCODONE
  8. REPATHA [Suspect]
     Active Substance: EVOLOCUMAB
     Indication: HYPERTENSION
     Dosage: ?          OTHER FREQUENCY:EVERY 2 WEEKS;??
     Route: 058
     Dates: start: 20180502
  9. LEVOFLOXACIN. [Concomitant]
     Active Substance: LEVOFLOXACIN
  10. PREDNISONE. [Concomitant]
     Active Substance: PREDNISONE
  11. TRELEGY ELLIPTA [Concomitant]
     Active Substance: FLUTICASONE FUROATE\UMECLIDINIUM BROMIDE\VILANTEROL TRIFENATATE

REACTIONS (1)
  - Pneumonia [None]

NARRATIVE: CASE EVENT DATE: 20190815
